FAERS Safety Report 5156706-2 (Version None)
Quarter: 2006Q4

REPORT INFORMATION
  Report Type: 
  Country: None (occurrence: None)
  Receive Date: 20061115
  Receipt Date: 20061031
  Transmission Date: 20070319
  Serious: Yes (Hospitalization)
  Sender: FDA-Public Use
  Company Number: 2006BI015830

PATIENT
  Age: 62 Year
  Sex: Male
  Weight: 66 kg

DRUGS (9)
  1. ZEVALIN [Suspect]
     Indication: BONE MARROW CONDITIONING REGIMEN
     Dosage: 1010 MBQ; IX; IV
     Route: 042
     Dates: start: 20060623, end: 20060623
  2. RITUXIMAB [Concomitant]
  3. CARMUSTINE [Concomitant]
  4. ETOPOSIDE [Concomitant]
  5. CYATRABINE [Concomitant]
  6. MELPHALAN [Concomitant]
  7. AMIKACIN [Concomitant]
  8. VORICONAZOLE [Concomitant]
  9. BORTEZOMIB [Concomitant]

REACTIONS (3)
  - FEBRILE BONE MARROW APLASIA [None]
  - IATROGENIC INJURY [None]
  - RENAL FAILURE ACUTE [None]
